FAERS Safety Report 10144487 (Version 3)
Quarter: 2014Q2

REPORT INFORMATION
  Report Type: Spontaneous
  Country: CH (occurrence: CH)
  Receive Date: 20140430
  Receipt Date: 20140515
  Transmission Date: 20141212
  Serious: Yes (Hospitalization)
  Sender: FDA-Public Use
  Company Number: CH-ELI_LILLY_AND_COMPANY-CH201404009357

PATIENT
  Age: 22 Year
  Sex: Female

DRUGS (1)
  1. CYMBALTA [Suspect]
     Indication: DEPRESSION
     Dosage: 30 MG, QD
     Route: 065
     Dates: start: 201311

REACTIONS (3)
  - Pulmonary embolism [Unknown]
  - Coagulopathy [Unknown]
  - Protein C deficiency [Unknown]
